FAERS Safety Report 10553104 (Version 1)
Quarter: 2014Q4

REPORT INFORMATION
  Report Type: Spontaneous
  Country: US (occurrence: US)
  Receive Date: 20141030
  Receipt Date: 20141030
  Transmission Date: 20150529
  Serious: Yes (Death, Hospitalization)
  Sender: FDA-Public Use
  Company Number: PHHY2014US137418

PATIENT
  Age: 45 Year
  Sex: Female

DRUGS (1)
  1. ALLOPURINOL. [Suspect]
     Active Substance: ALLOPURINOL
     Indication: PRODUCT USED FOR UNKNOWN INDICATION
     Dosage: 100 MG, QD
     Route: 065

REACTIONS (11)
  - Dyspnoea [Unknown]
  - Rash [Recovering/Resolving]
  - Dysphagia [Unknown]
  - Drug reaction with eosinophilia and systemic symptoms [Unknown]
  - Cerebral haemorrhage [Fatal]
  - Pyrexia [Recovering/Resolving]
  - Acute kidney injury [Recovering/Resolving]
  - Brain herniation [Fatal]
  - Hepatic enzyme increased [Recovering/Resolving]
  - Dermatitis exfoliative [Recovering/Resolving]
  - Swelling face [Recovering/Resolving]
